FAERS Safety Report 8342018 (Version 2)
Quarter: 2013Q2

REPORT INFORMATION
  Report Type: Spontaneous
  Country: US (occurrence: None)
  Receive Date: 20111202
  Receipt Date: 20121203
  Transmission Date: 20140414
  Serious: Yes (Hospitalization, Disabling, Other)
  Sender: FDA-Public Use
  Company Number: 2011SP016571

PATIENT
  Age: 45 Year
  Sex: Female
  Weight: 56.3 kg

DRUGS (1)
  1. NUVARING (ETONOGESTREL (+) ETHINYL ESTRADIOL) VAGINAL RING [Suspect]
     Indication: PREMENSTRUAL SYNDROME
     Dates: start: 20040421, end: 20061210

REACTIONS (14)
  - DEEP VEIN THROMBOSIS [None]
  - PULMONARY INFARCTION [None]
  - INAPPROPRIATE SCHEDULE OF DRUG ADMINISTRATION [None]
  - Meniscus injury [None]
  - ANTIPHOSPHOLIPID ANTIBODIES POSITIVE [None]
  - ANXIETY [None]
  - BREAST TENDERNESS [None]
  - BREAST MASS [None]
  - Hypoaesthesia [None]
  - Muscle spasms [None]
  - Breast mass [None]
  - Anxiety [None]
  - Off label use [None]
  - Local swelling [None]
